FAERS Safety Report 6998257-6 (Version None)
Quarter: 2010Q3

REPORT INFORMATION
  Report Type: 
  Country: None (occurrence: None)
  Receive Date: 20100920
  Receipt Date: 20100317
  Transmission Date: 20110219
  Serious: No
  Sender: FDA-Public Use
  Company Number: US-ASTRAZENECA-2010SE11656

PATIENT
  Age: 17249 Day
  Sex: Female
  Weight: 70.3 kg

DRUGS (3)
  1. SEROQUEL XR [Suspect]
     Indication: BIPOLAR DISORDER
     Route: 048
     Dates: start: 20090301, end: 20100302
  2. SEROQUEL XR [Suspect]
     Indication: ANXIETY
     Route: 048
     Dates: start: 20090301, end: 20100302
  3. SEROQUEL XR [Suspect]
     Indication: SLEEP DISORDER
     Route: 048
     Dates: start: 20090301, end: 20100302

REACTIONS (7)
  - CHROMATURIA [None]
  - CONFUSIONAL STATE [None]
  - GAIT DISTURBANCE [None]
  - HYPOTENSION [None]
  - MUSCLE RIGIDITY [None]
  - MYALGIA [None]
  - PYREXIA [None]
